FAERS Safety Report 6341348-3 (Version None)
Quarter: 2009Q3

REPORT INFORMATION
  Report Type: 
  Country: None (occurrence: None)
  Receive Date: 20090904
  Receipt Date: 20090902
  Transmission Date: 20100115
  Serious: Yes (Death, Hospitalization)
  Sender: FDA-Public Use
  Company Number: PHHO2009FR09649

PATIENT
  Sex: Female

DRUGS (5)
  1. RAD 666 RAD+TAB [Suspect]
     Indication: ENDOMETRIAL CANCER METASTATIC
     Dosage: 10MG/DAY
     Route: 048
     Dates: start: 20090723, end: 20090807
  2. ACTISKENAN [Concomitant]
     Dosage: UNK
  3. DOLIPRANE [Concomitant]
     Dosage: UNK
  4. AMLODIPINE [Concomitant]
     Dosage: UNK
  5. HYPERIUM [Concomitant]
     Dosage: UNK

REACTIONS (8)
  - ACUTE RESPIRATORY DISTRESS SYNDROME [None]
  - BACK PAIN [None]
  - DYSPNOEA [None]
  - MALIGNANT NEOPLASM PROGRESSION [None]
  - METASTASES TO PLEURA [None]
  - PLEURISY [None]
  - PLEURITIC PAIN [None]
  - THORACIC CAVITY DRAINAGE [None]
